FAERS Safety Report 15601223 (Version 2)
Quarter: 2019Q1

REPORT INFORMATION
  Report Type: Spontaneous
  Country: US (occurrence: US)
  Receive Date: 20181109
  Receipt Date: 20190103
  Transmission Date: 20190417
  Serious: Yes (Other)
  Sender: FDA-Public Use
  Company Number: US-BAYER-2018-208573

PATIENT
  Age: 33 Year
  Sex: Female

DRUGS (3)
  1. MIRENA [Suspect]
     Active Substance: LEVONORGESTREL
     Indication: CONTRACEPTION
     Dosage: 20 MCG/24HR, CONT
     Route: 015
     Dates: start: 20181106, end: 20181106
  2. NUVARING [Concomitant]
     Active Substance: ETHINYL ESTRADIOL\ETONOGESTREL
  3. MIRENA [Suspect]
     Active Substance: LEVONORGESTREL

REACTIONS (4)
  - Abdominal pain lower [Recovered/Resolved]
  - Complication of device insertion [None]
  - Procedural pain [Recovered/Resolved]
  - Uterine perforation [Recovered/Resolved]

NARRATIVE: CASE EVENT DATE: 20180711
